FAERS Safety Report 4546852-6 (Version None)
Quarter: 2005Q1

REPORT INFORMATION
  Report Type: 
  Country: None (occurrence: None)
  Receive Date: 20050105
  Receipt Date: 20041209
  Transmission Date: 20050727
  Serious: Yes (Hospitalization, Other)
  Sender: FDA-Public Use
  Company Number: GBS041216136

PATIENT
  Age: 17 Year
  Sex: Male
  Weight: 60 kg

DRUGS (2)
  1. STRATTERA [Suspect]
     Indication: ATTENTION DEFICIT/HYPERACTIVITY DISORDER
     Dosage: 60 MG DAY
     Dates: start: 20041010, end: 20041026
  2. RITALIN [Concomitant]
     Indication: AUTISM

REACTIONS (5)
  - BUNDLE BRANCH BLOCK RIGHT [None]
  - EXCITABILITY [None]
  - IMPULSIVE BEHAVIOUR [None]
  - INTENTIONAL MISUSE [None]
  - TACHYCARDIA [None]
